FAERS Safety Report 7968010-5 (Version None)
Quarter: 2011Q4

REPORT INFORMATION
  Report Type: 
  Country: None (occurrence: None)
  Receive Date: 20111209
  Receipt Date: 20111202
  Transmission Date: 20120403
  Serious: Yes (Other)
  Sender: FDA-Public Use
  Company Number: FR-UCBSA-046994

PATIENT
  Age: 24 Hour
  Sex: Female
  Weight: 2.32 kg

DRUGS (2)
  1. FOLIC ACID [Concomitant]
     Route: 064
     Dates: start: 20100101
  2. VIMPAT [Suspect]
     Route: 064

REACTIONS (3)
  - EAR MALFORMATION [None]
  - SMALL FOR DATES BABY [None]
  - FOETAL EXPOSURE DURING PREGNANCY [None]
